FAERS Safety Report 8255912-8 (Version None)
Quarter: 2012Q1

REPORT INFORMATION
  Report Type: 
  Country: None (occurrence: None)
  Receive Date: 20120322
  Receipt Date: 20111208
  Transmission Date: 20120608
  Serious: Yes (Hospitalization)
  Sender: FDA-Public Use
  Company Number: UTC-013216

PATIENT
  Age: 6 Year
  Sex: Male
  Weight: 22.73 kg

DRUGS (5)
  1. TYVASO [Suspect]
     Indication: COR PULMONALE CHRONIC
     Dosage: 144 MCG (36 MCG, 4 IN 1 D), INHALATION
     Route: 055
     Dates: start: 20100528
  2. DIGOXIN [Concomitant]
  3. DIURETICS (DIURETICS) [Concomitant]
  4. TRACLEER [Concomitant]
  5. REVATIO [Concomitant]

REACTIONS (2)
  - PNEUMONIA [None]
  - TRACHEOSTOMY [None]
